FAERS Safety Report 10005021 (Version 2)
Quarter: 2014Q1

REPORT INFORMATION
  Report Type: Spontaneous
  Country: JP (occurrence: JP)
  Receive Date: 20140312
  Receipt Date: 20140331
  Transmission Date: 20141002
  Serious: No
  Sender: FDA-Public Use
  Company Number: PHHY2014JP029200

PATIENT
  Sex: 0

DRUGS (2)
  1. TASIGNA [Suspect]
     Dosage: UNK UKN, UNK
     Route: 048
  2. TASIGNA [Suspect]
     Dosage: 200 MG, DAILY
     Route: 048

REACTIONS (3)
  - Oedema [Recovered/Resolved]
  - Pyrexia [Recovered/Resolved]
  - Overdose [Unknown]
